FAERS Safety Report 15551845 (Version 1)
Quarter: 2018Q4

REPORT INFORMATION
  Report Type: Report from Study
  Country: LB (occurrence: LB)
  Receive Date: 20181025
  Receipt Date: 20181025
  Transmission Date: 20190205
  Serious: Yes (Hospitalization)
  Sender: FDA-Public Use
  Company Number: LB-BAYER-2018-195435

PATIENT
  Age: 77 Year
  Sex: Male

DRUGS (2)
  1. DABIGATRAN [Interacting]
     Active Substance: DABIGATRAN
     Dosage: 150 MG, BID
  2. ASPIRIN. [Suspect]
     Active Substance: ASPIRIN

REACTIONS (4)
  - Traumatic intracranial haemorrhage [None]
  - Labelled drug-drug interaction medication error [None]
  - Fall [None]
  - Drug interaction [None]
